FAERS Safety Report 25251941 (Version 2)
Quarter: 2025Q2

REPORT INFORMATION
  Report Type: Spontaneous
  Country: AT (occurrence: AT)
  Receive Date: 20250429
  Receipt Date: 20250430
  Transmission Date: 20250716
  Serious: Yes (Other)
  Sender: SANDOZ
  Company Number: AT-SAMSUNG BIOEPIS-SB-2025-12759

PATIENT

DRUGS (1)
  1. ADALIMUMAB [Suspect]
     Active Substance: ADALIMUMAB
     Indication: Colitis ulcerative
     Route: 065
     Dates: start: 201812

REACTIONS (2)
  - Campylobacter gastroenteritis [Unknown]
  - Multiple sclerosis [Unknown]
